FAERS Safety Report 4686018-2 (Version None)
Quarter: 2005Q2

REPORT INFORMATION
  Report Type: 
  Country: None (occurrence: None)
  Receive Date: 20050606
  Receipt Date: 20050524
  Transmission Date: 20051028
  Serious: Yes (Death)
  Sender: FDA-Public Use
  Company Number: 2005S1000090

PATIENT
  Age: 92 Year
  Sex: Female

DRUGS (10)
  1. CUBICIN [Suspect]
     Indication: STAPHYLOCOCCAL BACTERAEMIA
     Dosage: 6 MG/KG; Q24H; IV
     Route: 042
     Dates: start: 20050327, end: 20050504
  2. VANCOMYCIN [Concomitant]
  3. RIFAMPIN [Concomitant]
  4. ISOSORBIDE MONONITRATE [Concomitant]
  5. LASIX [Concomitant]
  6. PEPCID [Concomitant]
  7. COLACE [Concomitant]
  8. MORPHINE [Concomitant]
  9. TYLENOL [Concomitant]
  10. MULTI-VITAMIN [Concomitant]

REACTIONS (5)
  - CONDITION AGGRAVATED [None]
  - ENDOCARDITIS [None]
  - IMPLANT SITE INFECTION [None]
  - PATHOGEN RESISTANCE [None]
  - STAPHYLOCOCCAL BACTERAEMIA [None]
